FAERS Safety Report 8543080-4 (Version None)
Quarter: 2012Q3

REPORT INFORMATION
  Report Type: 
  Country: None (occurrence: None)
  Receive Date: 20120727
  Receipt Date: 20110630
  Transmission Date: 20120928
  Serious: No
  Sender: FDA-Public Use
  Company Number: US-MYLANLABS-2011S1013883

PATIENT
  Age: 65 Year
  Sex: Female

DRUGS (3)
  1. LIOTHYRONINE SODIUM [Concomitant]
  2. HORMONE THERAPY [Concomitant]
  3. LEVOTHYROXINE SODIUM [Suspect]
     Indication: THYROID DISORDER
     Dates: start: 20110501

REACTIONS (3)
  - COUGH [None]
  - OEDEMA [None]
  - REACTION TO DRUG EXCIPIENTS [None]
